FAERS Safety Report 11389332 (Version 4)
Quarter: 2017Q3

REPORT INFORMATION
  Report Type: Spontaneous
  Country: US (occurrence: US)
  Receive Date: 20150817
  Receipt Date: 20170918
  Transmission Date: 20171127
  Serious: Yes (Other)
  Sender: FDA-Public Use
  Company Number: US-PFIZER INC-2015267805

PATIENT
  Age: 52 Year
  Sex: Female
  Weight: 52 kg

DRUGS (10)
  1. LYRICA [Interacting]
     Active Substance: PREGABALIN
     Dosage: 150 MG, UNK
     Route: 048
  2. LYRICA [Interacting]
     Active Substance: PREGABALIN
     Dosage: 150 MG, 3X/DAY
  3. LYRICA [Interacting]
     Active Substance: PREGABALIN
     Dosage: 150 MG, UNK  (1-4 TIMES A DAY)
     Route: 048
  4. GABA [Interacting]
     Active Substance: HOMEOPATHICS
     Indication: NUTRITIONAL SUPPLEMENTATION
     Dosage: UNK
  5. LYRICA [Interacting]
     Active Substance: PREGABALIN
     Indication: PAIN
     Dosage: 150 MG, 3X/DAY
     Dates: start: 201508
  6. LYRICA [Interacting]
     Active Substance: PREGABALIN
     Dosage: 75 MG, 2X/DAY
     Dates: start: 20150803
  7. LYRICA [Interacting]
     Active Substance: PREGABALIN
     Dosage: 150 MG, 2X/DAY
  8. MARINOL [Concomitant]
     Active Substance: DRONABINOL
     Dosage: UNK
  9. LYRICA [Suspect]
     Active Substance: PREGABALIN
     Indication: NEURALGIA
     Dosage: 75 MG, 3X/DAY
     Dates: start: 201507
  10. LYRICA [Interacting]
     Active Substance: PREGABALIN
     Indication: NEUROPATHY PERIPHERAL
     Dosage: 75 MG, 2X/DAY
     Dates: start: 201507

REACTIONS (7)
  - Seizure [Not Recovered/Not Resolved]
  - Burning sensation [Unknown]
  - Feeling abnormal [Unknown]
  - Drug interaction [Unknown]
  - Drug ineffective [Not Recovered/Not Resolved]
  - Muscle contractions involuntary [Unknown]
  - Pain [Not Recovered/Not Resolved]

NARRATIVE: CASE EVENT DATE: 20150803
